FAERS Safety Report 19550408 (Version 1)
Quarter: 2021Q3

REPORT INFORMATION
  Report Type: Spontaneous
  Country: US (occurrence: US)
  Receive Date: 20210714
  Receipt Date: 20210714
  Transmission Date: 20211014
  Serious: No
  Sender: FDA-Public Use
  Company Number: US-JNJFOC-20210718889

PATIENT
  Age: 14 Year
  Sex: Male

DRUGS (1)
  1. RISPERDAL [Suspect]
     Active Substance: RISPERIDONE
     Indication: DEAFNESS CONGENITAL
     Route: 065

REACTIONS (9)
  - Discomfort [Unknown]
  - Product use in unapproved indication [Unknown]
  - Memory impairment [Unknown]
  - Feeling abnormal [Unknown]
  - Off label use [Unknown]
  - Restlessness [Unknown]
  - Anxiety [Unknown]
  - Dyspepsia [Unknown]
  - Muscular weakness [Unknown]

NARRATIVE: CASE EVENT DATE: 2011
